FAERS Safety Report 23866730 (Version 1)
Quarter: 2024Q2

REPORT INFORMATION
  Report Type: Spontaneous
  Country: US (occurrence: US)
  Receive Date: 20240517
  Receipt Date: 20240517
  Transmission Date: 20240716
  Serious: Yes (Other)
  Sender: FDA-Public Use
  Company Number: US-HORIZON THERAPEUTICS-HZN-2024-002911

PATIENT

DRUGS (15)
  1. TEPEZZA [Suspect]
     Active Substance: TEPROTUMUMAB-TRBW
     Indication: Endocrine ophthalmopathy
     Dosage: FIRST INFUSION FIRST ROUND
     Route: 042
     Dates: start: 202112
  2. TEPEZZA [Suspect]
     Active Substance: TEPROTUMUMAB-TRBW
     Dosage: UNK,SECOND ROUND (FIRST INFUSION)
     Route: 042
  3. TEPEZZA [Suspect]
     Active Substance: TEPROTUMUMAB-TRBW
     Dosage: UNK,SECOND ROUND (SECOND INFUSION)
     Route: 042
  4. TEPEZZA [Suspect]
     Active Substance: TEPROTUMUMAB-TRBW
     Dosage: SECOND ROUND (EIGHT INFUSION)
     Route: 042
     Dates: start: 202403
  5. LEVOTHROID [Concomitant]
     Active Substance: LEVOTHYROXINE SODIUM
     Route: 048
  6. ATENOLOL HYDROCHLORIDE [Concomitant]
     Active Substance: ATENOLOL HYDROCHLORIDE
     Dosage: UNK
     Route: 048
  7. SYMBICORT [Concomitant]
     Active Substance: BUDESONIDE\FORMOTEROL FUMARATE DIHYDRATE
     Dosage: 2 PUFF, BID, (160/4.5 MCG/ACTUATION)
  8. SPIRIVA [Concomitant]
     Active Substance: TIOTROPIUM BROMIDE MONOHYDRATE
  9. ROSUVASTATIN [Concomitant]
     Active Substance: ROSUVASTATIN
     Dosage: 40 MG, QD (PM)
     Route: 048
  10. PLAVIX [Concomitant]
     Active Substance: CLOPIDOGREL BISULFATE
     Dosage: 75 MG, QOD
     Route: 048
  11. SPIRONOLACTONE [Concomitant]
     Active Substance: SPIRONOLACTONE
  12. DETROL [Concomitant]
     Active Substance: TOLTERODINE TARTRATE
     Dosage: 2 MG, QD, (PM)
     Route: 048
  13. NUCALA [Concomitant]
     Active Substance: MEPOLIZUMAB
     Dosage: 100 MG/ML, EVERY 3 WEEKS
     Route: 058
  14. CALCIUM [Concomitant]
     Active Substance: CALCIUM
  15. METHYLCOBALAMIN [Concomitant]
     Active Substance: METHYLCOBALAMIN

REACTIONS (5)
  - Deafness neurosensory [Unknown]
  - Off label use [Unknown]
  - Exophthalmos [Unknown]
  - Lacrimation increased [Unknown]
  - Eyelid retraction [Unknown]

NARRATIVE: CASE EVENT DATE: 20230208
